FAERS Safety Report 4842073-8 (Version None)
Quarter: 2005Q4

REPORT INFORMATION
  Report Type: 
  Country: None (occurrence: None)
  Receive Date: 20051130
  Receipt Date: 20051118
  Transmission Date: 20060501
  Serious: Yes (Other)
  Sender: FDA-Public Use
  Company Number: PHEH2005US12764

PATIENT
  Age: 79 Year
  Sex: Female
  Weight: 92.063 kg

DRUGS (2)
  1. PROCRIT [Concomitant]
  2. ZOMETA [Suspect]
     Dosage: 3 MG EVERY 28 DAYS
     Dates: start: 20031016, end: 20050817

REACTIONS (2)
  - OSTEONECROSIS [None]
  - TOOTH LOSS [None]
